FAERS Safety Report 6091671-5 (Version None)
Quarter: 2009Q1

REPORT INFORMATION
  Report Type: 
  Country: None (occurrence: None)
  Receive Date: 20090225
  Receipt Date: 20080401
  Transmission Date: 20090719
  Serious: No
  Sender: FDA-Public Use
  Company Number: A0718667A

PATIENT
  Age: 30 Year
  Sex: Female

DRUGS (1)
  1. VALTREX [Suspect]
     Indication: GENITAL HERPES
     Dosage: 500MG PER DAY
     Route: 048

REACTIONS (2)
  - ILL-DEFINED DISORDER [None]
  - PRODUCT QUALITY ISSUE [None]
